FAERS Safety Report 5637908-5 (Version None)
Quarter: 2008Q1

REPORT INFORMATION
  Report Type: 
  Country: None (occurrence: None)
  Receive Date: 20080221
  Receipt Date: 20080208
  Transmission Date: 20080703
  Serious: Yes (Hospitalization)
  Sender: FDA-Public Use
  Company Number: 2007BI017202

PATIENT
  Sex: Male

DRUGS (20)
  1. TYSABRI [Suspect]
     Indication: MULTIPLE SCLEROSIS
     Dosage: 300 MG; QM; IV
     Route: 042
     Dates: start: 20060919, end: 20070701
  2. WELLBUTRIN [Concomitant]
  3. VALIUM [Concomitant]
  4. SERZONE [Concomitant]
  5. LISINOPRIL [Concomitant]
  6. RAZADYNE [Concomitant]
  7. AMANTADINE HCL [Concomitant]
  8. BACLOFEN [Concomitant]
  9. FIORINAL [Concomitant]
  10. FLEXERIL [Concomitant]
  11. MIRALAX [Concomitant]
  12. NEURONTIN [Concomitant]
  13. PERCOCET [Concomitant]
  14. PREVACID [Concomitant]
  15. GALANTAMINE HYDROBROMIDE [Concomitant]
  16. VERAPAMIL [Concomitant]
  17. VESICARE [Concomitant]
  18. ZANAFLEX [Concomitant]
  19. VITAMIN CAP [Concomitant]
  20. DETROL [Concomitant]

REACTIONS (11)
  - ABDOMINAL PAIN [None]
  - BLADDER SPASM [None]
  - CHOROID MELANOMA [None]
  - CONSTIPATION [None]
  - CYSTITIS [None]
  - DEHYDRATION [None]
  - DEPRESSION [None]
  - HEMIPARESIS [None]
  - MUSCLE SPASTICITY [None]
  - NEUROGENIC BLADDER [None]
  - PROGRESSIVE MULTIFOCAL LEUKOENCEPHALOPATHY [None]
